FAERS Safety Report 8450228-9 (Version None)
Quarter: 2012Q2

REPORT INFORMATION
  Report Type: 
  Country: None (occurrence: None)
  Receive Date: 20120620
  Receipt Date: 20120611
  Transmission Date: 20120825
  Serious: Yes (Death, Life-Threatening, Other)
  Sender: FDA-Public Use
  Company Number: JP-CELGENEUS-087-50794-12052189

PATIENT
  Sex: Male
  Weight: 54 kg

DRUGS (16)
  1. FLUCONAZOLE [Concomitant]
     Route: 065
     Dates: end: 20110725
  2. VIDAZA [Suspect]
     Dosage: 75 MILLIGRAM/SQ. METER
     Route: 041
     Dates: start: 20110513, end: 20110519
  3. KYTRIL [Concomitant]
     Route: 065
     Dates: start: 20110808, end: 20110812
  4. VIDAZA [Suspect]
     Dosage: 75 MILLIGRAM/SQ. METER
     Route: 041
     Dates: start: 20110609, end: 20110617
  5. VIDAZA [Suspect]
     Dosage: 75 MILLIGRAM/SQ. METER
     Route: 041
     Dates: start: 20110707, end: 20110715
  6. KYTRIL [Concomitant]
     Route: 065
     Dates: start: 20110707, end: 20110715
  7. ITRACONAZOLE [Concomitant]
     Route: 065
     Dates: start: 20110726, end: 20110916
  8. LEVOFLOXACIN [Concomitant]
     Route: 065
     Dates: start: 20110726, end: 20110823
  9. VIDAZA [Suspect]
     Dosage: 75 MILLIGRAM/SQ. METER
     Route: 041
     Dates: start: 20110808, end: 20110812
  10. SELBEX [Concomitant]
     Route: 065
     Dates: end: 20110916
  11. ZOSYN [Concomitant]
     Route: 065
     Dates: start: 20110909, end: 20110917
  12. GRANISETRON HYDROCHLORIDE [Concomitant]
     Route: 065
     Dates: start: 20110513, end: 20110519
  13. MEROPENEM [Concomitant]
     Route: 065
     Dates: start: 20110823, end: 20110909
  14. RABEPRAZOLE SODIUM [Concomitant]
     Route: 065
     Dates: end: 20110916
  15. PREDNISOLONE [Concomitant]
     Route: 065
     Dates: end: 20110916
  16. METHYLPREDNISOLONE SODIUM SUCCINATE [Concomitant]
     Route: 065
     Dates: start: 20110823, end: 20110824

REACTIONS (4)
  - BLAST CELL COUNT INCREASED [None]
  - PLATELET COUNT DECREASED [None]
  - NEUTROPENIA [None]
  - PNEUMONIA [None]
